FAERS Safety Report 12961261 (Version 5)
Quarter: 2017Q2

REPORT INFORMATION
  Report Type: Spontaneous
  Country: US (occurrence: US)
  Receive Date: 20161121
  Receipt Date: 20170515
  Transmission Date: 20170830
  Serious: Yes (Hospitalization, Other)
  Sender: FDA-Public Use
  Company Number: US-PFIZER INC-2016537844

PATIENT
  Age: 54 Year
  Sex: Female

DRUGS (5)
  1. ZYVOX [Suspect]
     Active Substance: LINEZOLID
     Indication: INFECTION
  2. ZOLOFT [Concomitant]
     Active Substance: SERTRALINE HYDROCHLORIDE
     Indication: ANXIETY
     Dosage: 50 MG, 1X/DAY
     Route: 048
     Dates: start: 20161031
  3. ZYVOX [Suspect]
     Active Substance: LINEZOLID
     Indication: DEVICE RELATED INFECTION
     Dosage: 600 MG, 2X/DAY
     Route: 048
     Dates: start: 20161031, end: 20161116
  4. ZYVOX [Suspect]
     Active Substance: LINEZOLID
     Indication: MASTITIS
  5. ZYVOX [Suspect]
     Active Substance: LINEZOLID
     Indication: POST PROCEDURAL INFECTION

REACTIONS (6)
  - Diarrhoea [Recovered/Resolved]
  - Clostridium difficile colitis [Recovering/Resolving]
  - Tooth discolouration [Unknown]
  - Neuropathy peripheral [Recovering/Resolving]
  - Nausea [Recovering/Resolving]
  - Tongue discolouration [Unknown]

NARRATIVE: CASE EVENT DATE: 201611
